FAERS Safety Report 7480754-0 (Version None)
Quarter: 2011Q2

REPORT INFORMATION
  Report Type: 
  Country: None (occurrence: None)
  Receive Date: 20110506
  Receipt Date: 20110421
  Transmission Date: 20111010
  Serious: Yes (Other)
  Sender: FDA-Public Use
  Company Number: 031896

PATIENT
  Age: 12 Year
  Sex: Female

DRUGS (4)
  1. VALPROIC ACID [Concomitant]
  2. ZONEGRAN [Concomitant]
  3. LAMOTRIGINE [Concomitant]
  4. LACOSAMIDE [Suspect]
     Dosage: (1 X 50MG (1.2 MG/KG/DAY)), (6.25 MG/KG BODY WEIGHT (100-0-150) AFTER UP TITRATION WITH 1.2 MG/KG)

REACTIONS (4)
  - DIZZINESS [None]
  - CONVULSION [None]
  - CONDITION AGGRAVATED [None]
  - OFF LABEL USE [None]
